FAERS Safety Report 18084154 (Version 1)
Quarter: 2020Q3

REPORT INFORMATION
  Report Type: Spontaneous
  Country: US (occurrence: US)
  Receive Date: 20200729
  Receipt Date: 20200729
  Transmission Date: 20201103
  Serious: Yes (Other)
  Sender: FDA-Public Use
  Company Number: US-BRISTOL-MYERS SQUIBB COMPANY-BMS-2020-060523

PATIENT
  Sex: Male

DRUGS (2)
  1. NIVOLUMAB [Suspect]
     Active Substance: NIVOLUMAB
     Indication: GLIOMA
     Dosage: 3 MILLIGRAM/KILOGRAM, EVERY 2?3 WEEKS
     Route: 065
  2. IPILIMUMAB [Suspect]
     Active Substance: IPILIMUMAB
     Indication: GLIOMA
     Dosage: 1 MILLIGRAM/KILOGRAM, EVERY 2?3 WEEKS
     Route: 065

REACTIONS (3)
  - Nausea [Unknown]
  - Intentional product use issue [Unknown]
  - Weight decreased [Unknown]
